FAERS Safety Report 19063860 (Version 5)
Quarter: 2021Q4

REPORT INFORMATION
  Report Type: Spontaneous
  Country: TR (occurrence: TR)
  Receive Date: 20210326
  Receipt Date: 20211217
  Transmission Date: 20220303
  Serious: Yes (Hospitalization)
  Sender: FDA-Public Use
  Company Number: TR-CELGENE-TUR-20210305270

PATIENT
  Age: 55 Year
  Sex: Male
  Weight: 63 kg

DRUGS (4)
  1. ABRAXANE [Suspect]
     Active Substance: PACLITAXEL
     Indication: Non-small cell lung cancer
     Dosage: 169 MILLIGRAM
     Route: 041
     Dates: start: 20201225, end: 20210218
  2. SERPLULIMAB [Suspect]
     Active Substance: SERPLULIMAB
     Indication: Non-small cell lung cancer
     Dosage: 279 MILLIGRAM
     Route: 041
     Dates: start: 20201225, end: 20210212
  3. CARBOPLATIN [Suspect]
     Active Substance: CARBOPLATIN
     Indication: Non-small cell lung cancer
     Dosage: 640.5 MILLIGRAM
     Route: 041
     Dates: start: 20201225
  4. CARBOPLATIN [Suspect]
     Active Substance: CARBOPLATIN
     Dosage: 634.4 MILLIGRAM
     Route: 041
     Dates: start: 20210212, end: 20210212

REACTIONS (2)
  - Hypercalcaemia [Recovered/Resolved]
  - Pneumonitis [Recovering/Resolving]

NARRATIVE: CASE EVENT DATE: 20210228
